FAERS Safety Report 14313718 (Version 3)
Quarter: 2018Q2

REPORT INFORMATION
  Report Type: Report from Study
  Country: US (occurrence: US)
  Receive Date: 20171221
  Receipt Date: 20180619
  Transmission Date: 20180711
  Serious: Yes (Hospitalization, Other)
  Sender: FDA-Public Use
  Company Number: US-ROCHE-2043977

PATIENT
  Age: 54 Year
  Sex: Male
  Weight: 115.32 kg

DRUGS (26)
  1. ELIQUIS [Concomitant]
     Active Substance: APIXABAN
     Route: 048
  2. HYDROCODONE BITARTRATE/ACETAMINOPHEN [Concomitant]
     Active Substance: ACETAMINOPHEN\HYDROCODONE BITARTRATE
  3. NEURONTIN [Concomitant]
     Active Substance: GABAPENTIN
     Route: 048
     Dates: start: 20180410
  4. NORCO [Concomitant]
     Active Substance: ACETAMINOPHEN\HYDROCODONE BITARTRATE
     Dosage: 7.5 TO 324 MG TABLET
     Route: 048
     Dates: end: 20180424
  5. METROGEL [Concomitant]
     Active Substance: METRONIDAZOLE
     Route: 061
     Dates: start: 20180325
  6. FLOMAX [Concomitant]
     Active Substance: TAMSULOSIN HYDROCHLORIDE
     Dosage: AT NIGHT
     Route: 048
  7. LIORESAL [Concomitant]
     Active Substance: BACLOFEN
     Route: 048
     Dates: end: 20180424
  8. GILENYA [Concomitant]
     Active Substance: FINGOLIMOD HYDROCHLORIDE
     Route: 048
     Dates: end: 20180424
  9. VALIUM [Suspect]
     Active Substance: DIAZEPAM
     Indication: ANXIETY
     Route: 048
  10. DANTRIUM [Concomitant]
     Active Substance: DANTROLENE SODIUM
     Route: 048
     Dates: start: 20180418
  11. GABAPENTIN. [Concomitant]
     Active Substance: GABAPENTIN
     Route: 065
  12. MELATONIN [Concomitant]
     Active Substance: MELATONIN
     Dosage: AT NIGHT
     Route: 048
     Dates: start: 20150724, end: 20180424
  13. ZANAFLEX [Concomitant]
     Active Substance: TIZANIDINE HYDROCHLORIDE
     Route: 048
  14. VALTREX [Concomitant]
     Active Substance: VALACYCLOVIR HYDROCHLORIDE
     Route: 048
     Dates: start: 20180422
  15. KEFLEX [Concomitant]
     Active Substance: CEPHALEXIN
     Route: 048
     Dates: start: 20180423
  16. LASIX [Concomitant]
     Active Substance: FUROSEMIDE
     Route: 048
     Dates: start: 20180326
  17. NEURONTIN [Concomitant]
     Active Substance: GABAPENTIN
     Route: 048
     Dates: end: 20180424
  18. LINZESS [Concomitant]
     Active Substance: LINACLOTIDE
     Route: 048
  19. DITROPAN [Concomitant]
     Active Substance: OXYBUTYNIN CHLORIDE
     Route: 048
     Dates: start: 20180406
  20. OCREVUS [Suspect]
     Active Substance: OCRELIZUMAB
     Indication: PRIMARY PROGRESSIVE MULTIPLE SCLEROSIS
     Dosage: ONGOING: UNKNOWN
     Route: 042
     Dates: start: 201709
  21. VITAMIN D3 [Concomitant]
     Active Substance: CHOLECALCIFEROL
     Route: 048
     Dates: end: 20180424
  22. COLACE [Concomitant]
     Active Substance: DOCUSATE SODIUM
     Route: 048
  23. GLYCOLAX [Concomitant]
     Active Substance: POLYETHYLENE GLYCOL 3350
     Route: 048
     Dates: end: 20180424
  24. CELEXA (CITALOPRAM) [Concomitant]
     Route: 048
  25. NORCO [Concomitant]
     Active Substance: ACETAMINOPHEN\HYDROCODONE BITARTRATE
     Dosage: 5 TO 325 MG TABLET
     Route: 048
     Dates: start: 20180323
  26. ULTRAM [Concomitant]
     Active Substance: TRAMADOL HYDROCHLORIDE
     Route: 048
     Dates: end: 20180424

REACTIONS (8)
  - Sepsis [Unknown]
  - Fungal skin infection [Not Recovered/Not Resolved]
  - Skin papilloma [Unknown]
  - Nausea [Unknown]
  - Cellulitis [Unknown]
  - Pneumonia [Unknown]
  - Urinary tract infection [Unknown]
  - Pain [Unknown]

NARRATIVE: CASE EVENT DATE: 201711
